FAERS Safety Report 23202195 (Version 2)
Quarter: 2023Q4

REPORT INFORMATION
  Report Type: Spontaneous
  Country: US (occurrence: None)
  Receive Date: 20231120
  Receipt Date: 20231214
  Transmission Date: 20240110
  Serious: Yes (Other)
  Sender: FDA-Public Use
  Company Number: 2023A240291

PATIENT
  Age: 25896 Day

DRUGS (1)
  1. FASENRA [Suspect]
     Active Substance: BENRALIZUMAB
     Dosage: 30 MG/ML 30MG/ML EVERY EIGHT WEEKS
     Route: 058

REACTIONS (4)
  - Cardiac dysfunction [Unknown]
  - Injection site pain [Unknown]
  - Product dose omission issue [Unknown]
  - Drug dose omission by device [Unknown]

NARRATIVE: CASE EVENT DATE: 20231019
